FAERS Safety Report 4828457-2 (Version None)
Quarter: 2005Q4

REPORT INFORMATION
  Report Type: 
  Country: None (occurrence: None)
  Receive Date: 20051115
  Receipt Date: 20050625
  Transmission Date: 20060501
  Serious: Yes (Hospitalization)
  Sender: FDA-Public Use
  Company Number: US-MERCK-0506USA03600

PATIENT
  Sex: Female
  Weight: 95 kg

DRUGS (10)
  1. VIOXX [Suspect]
     Indication: ARTHRALGIA
     Route: 048
     Dates: start: 20010726, end: 20040909
  2. ACIPHEX [Concomitant]
     Indication: GASTROOESOPHAGEAL REFLUX DISEASE
     Route: 065
  3. CYANOCOBALAMIN [Concomitant]
     Indication: ANAEMIA
     Route: 065
  4. MYSOLINE [Concomitant]
     Route: 065
     Dates: end: 20040909
  5. PHENOBARBITAL [Concomitant]
     Indication: CONVULSION
     Route: 065
     Dates: start: 19800101
  6. IMIPRAMINE HYDROCHLORIDE [Concomitant]
     Route: 065
     Dates: start: 19700101, end: 20040909
  7. DARVOCET-N 100 [Concomitant]
     Indication: ARTHRITIS
     Route: 065
  8. CARDIZEM LA [Concomitant]
     Route: 065
     Dates: end: 20040901
  9. PREMARIN [Concomitant]
     Route: 065
     Dates: start: 19750101, end: 20040901
  10. TYLENOL (CAPLET) [Concomitant]
     Indication: ARTHRALGIA
     Route: 065
     Dates: start: 19700101

REACTIONS (12)
  - CARDIAC DISORDER [None]
  - DRUG INTERACTION [None]
  - DYSPNOEA [None]
  - HERNIA [None]
  - MYOCARDIAL INFARCTION [None]
  - OEDEMA PERIPHERAL [None]
  - POLYTRAUMATISM [None]
  - RESPIRATORY DISORDER [None]
  - SLEEP APNOEA SYNDROME [None]
  - THROMBOSIS [None]
  - THYROID DISORDER [None]
  - URINARY TRACT INFECTION [None]
